FAERS Safety Report 5932144-7 (Version None)
Quarter: 2008Q4

REPORT INFORMATION
  Report Type: 
  Country: None (occurrence: None)
  Receive Date: 20081027
  Receipt Date: 20081027
  Transmission Date: 20090506
  Serious: Yes (Life-Threatening, Hospitalization)
  Sender: FDA-Public Use
  Company Number: None

PATIENT
  Age: 57 Year
  Sex: Male
  Weight: 79 kg

DRUGS (2)
  1. TRIMETHOPRIM + SULFAMETHOXAZOLE [Suspect]
     Indication: ANTIFUNGAL PROPHYLAXIS
     Dosage: 1 DS TABLET EVERY OTHER DAY PO
     Route: 048
     Dates: start: 20080926, end: 20080928
  2. PHENYTOIN [Suspect]
     Indication: CONVULSION PROPHYLAXIS
     Dosage: 200 MG BID PO
     Route: 048
     Dates: start: 20080820, end: 20080826

REACTIONS (2)
  - NEUTROPHIL COUNT DECREASED [None]
  - STEVENS-JOHNSON SYNDROME [None]
